FAERS Safety Report 6317183-9 (Version None)
Quarter: 2009Q3

REPORT INFORMATION
  Report Type: 
  Country: None (occurrence: None)
  Receive Date: 20090819
  Receipt Date: 20090807
  Transmission Date: 20100115
  Serious: Yes (Hospitalization)
  Sender: FDA-Public Use
  Company Number: 2009AL003579

PATIENT
  Age: 83 Year
  Sex: Female

DRUGS (10)
  1. DIGOXIN [Suspect]
     Dosage: 0.125 MG, UNK, PO
     Route: 048
     Dates: start: 20050101, end: 20080101
  2. DILTIAZEM HCL [Concomitant]
  3. LASIX [Concomitant]
  4. PREMARIN [Concomitant]
  5. ASPIRIN [Concomitant]
  6. COUMADIN [Concomitant]
  7. VIGAMOX [Concomitant]
  8. CIPROFLOXACIN [Concomitant]
  9. FEXOFENADINE [Concomitant]
  10. ISOSORBID [Concomitant]

REACTIONS (16)
  - ATRIAL FIBRILLATION [None]
  - CARDIAC FAILURE CONGESTIVE [None]
  - CONJUNCTIVAL HAEMORRHAGE [None]
  - DEHYDRATION [None]
  - ECONOMIC PROBLEM [None]
  - ELECTROCARDIOGRAM CHANGE [None]
  - GASTROINTESTINAL DISORDER [None]
  - HAEMORRHOIDS [None]
  - HEART RATE IRREGULAR [None]
  - HYPERTENSION [None]
  - HYPOKALAEMIA [None]
  - INJURY [None]
  - MELANOSIS COLI [None]
  - SURGERY [None]
  - UNEVALUABLE EVENT [None]
  - VISUAL ACUITY REDUCED [None]
